FAERS Safety Report 16920392 (Version 1)
Quarter: 2019Q4

REPORT INFORMATION
  Report Type: Spontaneous
  Country: FR (occurrence: FR)
  Receive Date: 20191015
  Receipt Date: 20191015
  Transmission Date: 20200122
  Serious: Yes (Other)
  Sender: FDA-Public Use
  Company Number: FR-009507513-1910FRA006973

PATIENT
  Age: 61 Year
  Sex: Male
  Weight: 65 kg

DRUGS (6)
  1. KEYTRUDA [Suspect]
     Active Substance: PEMBROLIZUMAB
     Indication: LUNG ADENOCARCINOMA
     Dosage: 200 MILLIGRAM, Q3W
     Route: 042
     Dates: start: 20190320, end: 20190705
  2. ENTRESTO [Concomitant]
     Active Substance: SACUBITRIL\VALSARTAN
     Dosage: 2 DOSAGE FORM
     Route: 047
  3. DUPHALAC [Concomitant]
     Active Substance: LACTULOSE
     Dosage: 1 DOSAGE FORM
     Route: 047
  4. LASILIX [Concomitant]
     Active Substance: FUROSEMIDE
     Dosage: 80 MILLIGRAM
     Route: 047
  5. ALDACTONE [Concomitant]
     Active Substance: SPIRONOLACTONE
     Dosage: 25 MILLIGRAM, FORMULATION: SCORED FILM COATED TABLET
     Route: 047
  6. BISOCE [Concomitant]
     Active Substance: BISOPROLOL
     Dosage: 5 MILLIGRAM, FORMULATION: SCORED FILM COATED TABLET
     Route: 048

REACTIONS (1)
  - Acute kidney injury [Not Recovered/Not Resolved]

NARRATIVE: CASE EVENT DATE: 20190703
